FAERS Safety Report 5800767-1 (Version None)
Quarter: 2008Q3

REPORT INFORMATION
  Report Type: 
  Country: None (occurrence: None)
  Receive Date: 20080701
  Receipt Date: 20080617
  Transmission Date: 20090109
  Serious: Yes (Death, Hospitalization)
  Sender: FDA-Public Use
  Company Number: 2008001450

PATIENT
  Age: 57 Year
  Sex: Male

DRUGS (1)
  1. TARCEVA [Suspect]
     Indication: LUNG ADENOCARCINOMA
     Dosage: (150 MG,QD),ORAL
     Route: 048
     Dates: start: 20061101, end: 20070102

REACTIONS (4)
  - BACTERIAL SEPSIS [None]
  - RADIATION SKIN INJURY [None]
  - STUPOR [None]
  - SUBDURAL HAEMORRHAGE [None]
